FAERS Safety Report 7427810-0 (Version None)
Quarter: 2011Q2

REPORT INFORMATION
  Report Type: 
  Country: None (occurrence: None)
  Receive Date: 20110421
  Receipt Date: 20101006
  Transmission Date: 20111010
  Serious: Yes (Hospitalization, Other)
  Sender: FDA-Public Use
  Company Number: US-BAYER-201018592NA

PATIENT
  Age: 26 Year
  Sex: Female
  Weight: 54.422 kg

DRUGS (7)
  1. SEROQUEL [Concomitant]
     Indication: PRODUCT USED FOR UNKNOWN INDICATION
  2. YASMIN [Suspect]
     Indication: CONTRACEPTION
     Dosage: UNK
     Route: 048
     Dates: start: 20080201, end: 20080415
  3. YASMIN [Suspect]
     Indication: PREMENSTRUAL SYNDROME
  4. YASMIN [Suspect]
  5. YAZ [Suspect]
     Indication: PREMENSTRUAL SYNDROME
  6. YAZ [Suspect]
     Indication: CONTRACEPTION
     Dosage: UNK
     Route: 048
     Dates: start: 20080201, end: 20080415
  7. YAZ [Suspect]

REACTIONS (13)
  - CHOLELITHIASIS [None]
  - VOMITING [None]
  - DEPRESSION [None]
  - CHOLECYSTITIS CHRONIC [None]
  - ANXIETY [None]
  - CHOLESTEROSIS [None]
  - DECREASED APPETITE [None]
  - GASTROOESOPHAGEAL REFLUX DISEASE [None]
  - NAUSEA [None]
  - ABDOMINAL PAIN UPPER [None]
  - DYSPEPSIA [None]
  - ABDOMINAL PAIN [None]
  - ERUCTATION [None]
